FAERS Safety Report 7684079-X (Version None)
Quarter: 2011Q3

REPORT INFORMATION
  Report Type: 
  Country: None (occurrence: None)
  Receive Date: 20110815
  Receipt Date: 20110804
  Transmission Date: 20111222
  Serious: Yes (Hospitalization, Other)
  Sender: FDA-Public Use
  Company Number: US-ASTRAZENECA-2011SE40342

PATIENT
  Age: 56 Year
  Sex: Female

DRUGS (3)
  1. PRILOSEC [Suspect]
     Route: 048
  2. PRILOSEC OTC [Suspect]
     Route: 048
     Dates: start: 20110706
  3. NEXIUM [Suspect]
     Route: 048

REACTIONS (13)
  - CARDIAC FAILURE CONGESTIVE [None]
  - DIABETES MELLITUS [None]
  - GASTROOESOPHAGEAL REFLUX DISEASE [None]
  - DRUG INEFFECTIVE [None]
  - WRIST FRACTURE [None]
  - NERVE INJURY [None]
  - FALL [None]
  - WRIST SURGERY [None]
  - DEPRESSION [None]
  - DYSPEPSIA [None]
  - DRUG DOSE OMISSION [None]
  - CORONARY ARTERY DISEASE [None]
  - IMPAIRED WORK ABILITY [None]
